FAERS Safety Report 14650247 (Version 4)
Quarter: 2018Q2

REPORT INFORMATION
  Report Type: Report from Study
  Country: US (occurrence: US)
  Receive Date: 20180316
  Receipt Date: 20180416
  Transmission Date: 20180711
  Serious: Yes (Hospitalization, Other)
  Sender: FDA-Public Use
  Company Number: US-GILEAD-2018-0326181

PATIENT
  Age: 57 Year
  Sex: Male
  Weight: 78.1 kg

DRUGS (9)
  1. KEPPRA [Concomitant]
     Active Substance: LEVETIRACETAM
  2. ASPIRIN                            /00002701/ [Concomitant]
     Active Substance: ASPIRIN
  3. AMBRISENTAN [Suspect]
     Active Substance: AMBRISENTAN
     Indication: PORTOPULMONARY HYPERTENSION
     Dosage: 10 MG, QD
     Route: 065
     Dates: start: 20161128
  4. ADCIRCA [Concomitant]
     Active Substance: TADALAFIL
  5. INSPRA                             /01362602/ [Concomitant]
     Active Substance: MONTELUKAST SODIUM
  6. UPTRAVI [Concomitant]
     Active Substance: SELEXIPAG
  7. LASIX [Concomitant]
     Active Substance: FUROSEMIDE
  8. PROTONIX                           /00661201/ [Concomitant]
     Active Substance: OMEPRAZOLE
  9. LACTULOSE. [Concomitant]
     Active Substance: LACTULOSE

REACTIONS (2)
  - Localised infection [Unknown]
  - Abscess limb [Not Recovered/Not Resolved]
